FAERS Safety Report 6662176-5 (Version None)
Quarter: 2010Q1

REPORT INFORMATION
  Report Type: 
  Country: None (occurrence: None)
  Receive Date: 20100331
  Receipt Date: 20100322
  Transmission Date: 20100710
  Serious: Yes (Hospitalization)
  Sender: FDA-Public Use
  Company Number: TH-GENENTECH-292151

PATIENT
  Sex: Male
  Weight: 42 kg

DRUGS (12)
  1. BLINDED BEVACIZUMAB [Suspect]
     Dosage: UNK
     Route: 042
     Dates: start: 20090609
  2. CYCLOPHOSPHAMIDE [Suspect]
     Dosage: UNK
     Route: 042
     Dates: start: 20090609
  3. DOXORUBICIN HCL [Suspect]
     Dosage: UNK
     Route: 042
     Dates: start: 20090609
  4. BLINDED PLACEBO [Suspect]
     Dosage: UNK
     Route: 042
     Dates: start: 20090609
  5. BLINDED PREDNISONE [Suspect]
     Dosage: UNK
     Route: 042
     Dates: start: 20090609
  6. BLINDED RITUXIMAB [Suspect]
     Dosage: UNK
     Route: 042
     Dates: start: 20090609
  7. VINCRISTINE [Suspect]
     Dosage: UNK
     Route: 042
     Dates: start: 20090609
  8. RITUXIMAB [Suspect]
     Indication: DIFFUSE LARGE B-CELL LYMPHOMA
     Dosage: 375 MG/M2, UNK
     Route: 042
  9. CYCLOPHOSPHAMIDE [Suspect]
     Indication: DIFFUSE LARGE B-CELL LYMPHOMA
     Dosage: 750 MG/M2, UNK
     Route: 042
  10. DOXORUBICIN HCL [Suspect]
     Indication: DIFFUSE LARGE B-CELL LYMPHOMA
     Dosage: 50 MG/M2, UNK
     Route: 042
  11. VINCRISTINE [Suspect]
     Indication: DIFFUSE LARGE B-CELL LYMPHOMA
     Dosage: 1.4 MG/M2, UNK
     Route: 042
  12. PREDNISONE [Suspect]
     Indication: DIFFUSE LARGE B-CELL LYMPHOMA
     Dosage: 100 MG, UNK
     Route: 048

REACTIONS (3)
  - EJECTION FRACTION [None]
  - FEBRILE NEUTROPENIA [None]
  - PHARYNGITIS [None]
